FAERS Safety Report 12808668 (Version 2)
Quarter: 2016Q4

REPORT INFORMATION
  Report Type: Spontaneous
  Country: US (occurrence: US)
  Receive Date: 20161004
  Receipt Date: 20161006
  Transmission Date: 20170207
  Serious: Yes (Other)
  Sender: FDA-Public Use
  Company Number: PHEH2016US024575

PATIENT
  Age: 72 Year

DRUGS (4)
  1. SUTENT [Concomitant]
     Active Substance: SUNITINIB MALATE
     Indication: PRODUCT USED FOR UNKNOWN INDICATION
     Dosage: 1 DF, QD
     Route: 065
  2. SANDOSTATIN LAR DEPOT [Suspect]
     Active Substance: OCTREOTIDE ACETATE
     Indication: PRODUCT USED FOR UNKNOWN INDICATION
     Dosage: 30 MG, UNK
     Route: 030
     Dates: start: 20130717
  3. AFINITOR [Suspect]
     Active Substance: EVEROLIMUS
     Indication: PRODUCT USED FOR UNKNOWN INDICATION
     Dosage: UNK
     Route: 065
  4. LANTUS [Concomitant]
     Active Substance: INSULIN GLARGINE
     Indication: PRODUCT USED FOR UNKNOWN INDICATION
     Dosage: 100 U/ML, UNK (FOR 90 DAYS)
     Route: 058
     Dates: start: 20160523

REACTIONS (16)
  - Ileus [Unknown]
  - Kidney angiomyolipoma [Unknown]
  - Intestinal dilatation [Unknown]
  - Red cell distribution width increased [Unknown]
  - Intestinal obstruction [Unknown]
  - Hepatic lesion [Unknown]
  - Lymphocyte count increased [Unknown]
  - Eyelid oedema [Unknown]
  - Reticulocyte count increased [Unknown]
  - Mean platelet volume increased [Unknown]
  - Blood pressure increased [Unknown]
  - Glutamate dehydrogenase increased [Unknown]
  - Blood lactate dehydrogenase increased [Unknown]
  - Malignant neoplasm progression [Unknown]
  - Angioedema [Unknown]
  - Lip swelling [Unknown]

NARRATIVE: CASE EVENT DATE: 20151124
